FAERS Safety Report 7876071-7 (Version None)
Quarter: 2011Q4

REPORT INFORMATION
  Report Type: 
  Country: None (occurrence: None)
  Receive Date: 20111031
  Receipt Date: 20111024
  Transmission Date: 20120403
  Serious: Yes (Other)
  Sender: FDA-Public Use
  Company Number: FR-JNJFOC-20111012874

PATIENT

DRUGS (23)
  1. METHOTREXATE [Suspect]
     Indication: LYMPHOMA
     Route: 037
  2. CYCLOPHOSPHAMIDE [Suspect]
     Route: 065
  3. DOXORUBICIN HCL [Suspect]
     Indication: LYMPHOMA
     Route: 042
  4. DOXORUBICIN HCL [Suspect]
     Route: 042
  5. MESNA [Suspect]
     Indication: LYMPHOMA
     Route: 042
  6. MESNA [Suspect]
     Route: 042
  7. MESNA [Suspect]
     Route: 042
  8. ELDISINE [Suspect]
     Route: 065
  9. BLEOMYCIN SULFATE [Suspect]
     Indication: LYMPHOMA
     Route: 042
  10. PREDNISONE [Suspect]
     Indication: LYMPHOMA
     Route: 048
  11. CYCLOPHOSPHAMIDE [Suspect]
     Route: 065
  12. ELDISINE [Suspect]
     Indication: LYMPHOMA
     Route: 065
  13. ELDISINE [Suspect]
     Route: 065
  14. BLEOMYCIN SULFATE [Suspect]
     Route: 042
  15. DOXORUBICIN HCL [Suspect]
     Route: 042
  16. CYCLOPHOSPHAMIDE [Suspect]
     Indication: LYMPHOMA
     Route: 065
  17. MESNA [Suspect]
     Route: 042
  18. BLEOMYCIN SULFATE [Suspect]
     Route: 042
  19. ELDISINE [Suspect]
     Route: 065
  20. BLEOMYCIN SULFATE [Suspect]
     Route: 042
  21. DOXORUBICIN HCL [Suspect]
     Route: 042
  22. CYCLOPHOSPHAMIDE [Suspect]
     Route: 065
  23. NEUPOGEN [Concomitant]
     Route: 065

REACTIONS (1)
  - NEOPLASM MALIGNANT [None]
